FAERS Safety Report 5125564-4 (Version None)
Quarter: 2006Q4

REPORT INFORMATION
  Report Type: 
  Country: None (occurrence: None)
  Receive Date: 20061006
  Receipt Date: 20061003
  Transmission Date: 20070319
  Serious: Yes (Death)
  Sender: FDA-Public Use
  Company Number: HQWYE516103OCT06

PATIENT
  Age: 47 Year
  Sex: Male

DRUGS (12)
  1. RAPAMUNE [Suspect]
     Indication: PROPHYLAXIS AGAINST TRANSPLANT REJECTION
     Dosage: 4 MG 3X PER 1 WK
     Dates: start: 20060517, end: 20060724
  2. TACROLIMUS (TACROLIMUS, ) [Suspect]
     Indication: PROPHYLAXIS AGAINST TRANSPLANT REJECTION
     Dosage: 0.5 MG 1X PER 1 DAY, ORAL
     Route: 048
     Dates: start: 20060824
  3. MYCOPHENOLATE MOFETIL [Concomitant]
  4. DIFLUCAN [Concomitant]
  5. METHOCARBAMOL [Concomitant]
  6. URSODIOL (URSODEOXYCHOLIC ACID) [Concomitant]
  7. AMBIEN [Concomitant]
  8. PROTONIX [Concomitant]
  9. ZYVOX [Concomitant]
  10. PREDNISONE TAB [Concomitant]
  11. BETAGAN [Concomitant]
  12. LOPRESSOR [Concomitant]

REACTIONS (4)
  - HEPATIC ISCHAEMIA [None]
  - HEPATIC NECROSIS [None]
  - LIVER TRANSPLANT REJECTION [None]
  - PYREXIA [None]
